FAERS Safety Report 4421657-5 (Version None)
Quarter: 2004Q3

REPORT INFORMATION
  Report Type: 
  Country: None (occurrence: None)
  Receive Date: 20040802
  Receipt Date: 20040721
  Transmission Date: 20050211
  Serious: Yes (Hospitalization)
  Sender: FDA-Public Use
  Company Number: 2004-01450

PATIENT
  Age: 76 Year
  Sex: Male

DRUGS (1)
  1. IMMUCYST (BCG - IT (CONNAUGHT) ), AVENTIS PASTEUR LTD. [Suspect]
     Indication: BLADDER CANCER
     Dosage: 81MG B.IN., BLADDER
     Dates: start: 20040206

REACTIONS (13)
  - ABDOMINAL DISCOMFORT [None]
  - ABSCESS [None]
  - BOVINE TUBERCULOSIS [None]
  - CYTOLYTIC HEPATITIS [None]
  - DYSPEPSIA [None]
  - EARLY SATIETY [None]
  - EPIDIDYMITIS [None]
  - GENERAL PHYSICAL HEALTH DETERIORATION [None]
  - HICCUPS [None]
  - PYURIA [None]
  - TUBERCULOSIS [None]
  - WEIGHT DECREASED [None]
  - WEIGHT INCREASED [None]
